FAERS Safety Report 10706622 (Version 3)
Quarter: 2015Q1

REPORT INFORMATION
  Report Type: Report from Study
  Country: GB (occurrence: GB)
  Receive Date: 20150113
  Receipt Date: 20150127
  Transmission Date: 20150721
  Serious: Yes (Hospitalization)
  Sender: FDA-Public Use
  Company Number: GB-009507513-1501GBR002112

PATIENT
  Sex: Female
  Weight: 52.8 kg

DRUGS (8)
  1. VORINOSTAT [Suspect]
     Active Substance: VORINOSTAT
     Indication: MYELODYSPLASTIC SYNDROME
  2. SENNA [Concomitant]
     Active Substance: SENNA LEAF\SENNOSIDES\SENNOSIDES A AND B
     Indication: CONSTIPATION
     Dosage: UNK
     Dates: start: 201411
  3. MICROLAX (SODIUM CITRATE (+) SODIUM LAURYL SULFOACETATE (+) SORBITOL) [Concomitant]
     Indication: CONSTIPATION PROPHYLAXIS
     Dosage: UNK
     Dates: start: 20141223, end: 20150107
  4. LACTULOSE. [Concomitant]
     Active Substance: LACTULOSE
     Indication: CONSTIPATION
     Dosage: UNK
     Dates: start: 201411
  5. AZACITIDINE. [Suspect]
     Active Substance: AZACITIDINE
     Indication: ACUTE MYELOID LEUKAEMIA
     Dosage: 115 MG, QD, CURRENT CYCLE 4
     Route: 058
     Dates: start: 20140908, end: 20141209
  6. AZACITIDINE. [Suspect]
     Active Substance: AZACITIDINE
     Indication: MYELODYSPLASTIC SYNDROME
  7. LAXIDO [Concomitant]
     Active Substance: POLYETHYLENE GLYCOL 3350\POTASSIUM CHLORIDE\SODIUM BICARBONATE\SODIUM CHLORIDE
     Indication: CONSTIPATION
     Dosage: UNK
     Dates: start: 201411
  8. VORINOSTAT [Suspect]
     Active Substance: VORINOSTAT
     Indication: ACUTE MYELOID LEUKAEMIA
     Dosage: 300 MG, BID, CURRENT CYCLE 4
     Route: 048
     Dates: start: 20140910, end: 20141209

REACTIONS (5)
  - Mass [Recovered/Resolved]
  - Constipation [Recovered/Resolved]
  - Reproductive tract disorder [Recovered/Resolved]
  - Pelvic pain [Recovered/Resolved]
  - Breast disorder [Recovered/Resolved]

NARRATIVE: CASE EVENT DATE: 20141230
